FAERS Safety Report 21164382 (Version 1)
Quarter: 2022Q3

REPORT INFORMATION
  Report Type: Spontaneous
  Country: US (occurrence: US)
  Receive Date: 20220803
  Receipt Date: 20220803
  Transmission Date: 20221026
  Serious: No
  Sender: FDA-Public Use
  Company Number: US-CIPLA LTD.-2022US04702

PATIENT
  Age: 69 Year
  Sex: Female

DRUGS (1)
  1. SAJAZIR [Suspect]
     Active Substance: ICATIBANT ACETATE
     Indication: Hereditary angioedema
     Dosage: 30 MG/3ML, PRN
     Route: 058
     Dates: start: 2022

REACTIONS (1)
  - Pain in extremity [Unknown]
